FAERS Safety Report 4597989-7 (Version None)
Quarter: 2005Q1

REPORT INFORMATION
  Report Type: 
  Country: None (occurrence: None)
  Receive Date: 20050208
  Receipt Date: 20031104
  Transmission Date: 20050727
  Serious: Yes (Hospitalization)
  Sender: FDA-Public Use
  Company Number: 03USA0034(1)

PATIENT
  Age: 59 Year
  Sex: Female
  Weight: 61.2356 kg

DRUGS (4)
  1. GLIADEL [Suspect]
     Indication: GLIOBLASTOMA
     Dosage: (8 WAFERS IMPLANTED ONCE), IMPLANT
     Dates: start: 20030509
  2. DECADRON (DEXAMETHASONE) (2 MILLIGRAM, TABLETS) [Concomitant]
  3. AMOXICILLIN (AMOXICILLIN) (500 MILLIGRAM, CAPSULES) [Concomitant]
  4. CIPRO (CIPROFLOXACIN HYDROCHLORIDE) (500 MILLIGRAM, TABLETS) [Concomitant]

REACTIONS (1)
  - IMPAIRED HEALING [None]
